FAERS Safety Report 5150380-7 (Version None)
Quarter: 2006Q4

REPORT INFORMATION
  Report Type: 
  Country: None (occurrence: None)
  Receive Date: 20061108
  Receipt Date: 20061025
  Transmission Date: 20070319
  Serious: Yes (Other)
  Sender: FDA-Public Use
  Company Number: 2006131970

PATIENT
  Age: 18 Year
  Sex: Male
  Weight: 96 kg

DRUGS (4)
  1. LYRICA [Suspect]
     Indication: PARTIAL SEIZURES
     Dosage: 100 MG (50 MG, 2 IN 1 D)
     Dates: start: 20061001
  2. TOPIRAMATE [Concomitant]
  3. VIGABATRIN (VIGABATRIN) [Concomitant]
  4. ALL OTHER THERAPEUTIC PRODUCTS (ALL OTHER THERAPEUTIC PRODUCTS) [Concomitant]

REACTIONS (9)
  - CONDITION AGGRAVATED [None]
  - DISTURBANCE IN ATTENTION [None]
  - DRUG INEFFECTIVE [None]
  - FATIGUE [None]
  - GAIT DISTURBANCE [None]
  - MUSCULAR WEAKNESS [None]
  - PARTIAL SEIZURES [None]
  - VERTIGO [None]
  - WEIGHT DECREASED [None]
